FAERS Safety Report 18570626 (Version 3)
Quarter: 2021Q2

REPORT INFORMATION
  Report Type: Report from Study
  Country: DE (occurrence: DE)
  Receive Date: 20201202
  Receipt Date: 20210416
  Transmission Date: 20210717
  Serious: Yes (Hospitalization, Other)
  Sender: FDA-Public Use
  Company Number: DE-TAKEDA-2020TUS052731

PATIENT
  Sex: Female

DRUGS (4)
  1. HUMAN PROTEIN C [Suspect]
     Active Substance: PROTEIN C
     Indication: PROTEIN C DEFICIENCY
     Dosage: 4000 MILLIGRAM, 2/WEEK
     Route: 042
  2. HUMAN PROTEIN C [Suspect]
     Active Substance: PROTEIN C
     Dosage: 4000 MILLIGRAM, 2/WEEK
     Route: 042
     Dates: start: 20201120
  3. HUMAN PROTEIN C [Suspect]
     Active Substance: PROTEIN C
     Dosage: 4000 MILLIGRAM, 2/WEEK
     Route: 042
     Dates: start: 20200901, end: 20210330
  4. ELIQUIS [Concomitant]
     Active Substance: APIXABAN
     Indication: AMPUTATION
     Dosage: 5 MILLIGRAM, BID
     Route: 058

REACTIONS (2)
  - Central venous catheterisation [Recovered/Resolved]
  - Chest pain [Recovering/Resolving]

NARRATIVE: CASE EVENT DATE: 20201111
